FAERS Safety Report 17178753 (Version 1)
Quarter: 2019Q4

REPORT INFORMATION
  Report Type: Spontaneous
  Country: CA (occurrence: CA)
  Receive Date: 20191219
  Receipt Date: 20191219
  Transmission Date: 20200122
  Serious: Yes (Other)
  Sender: FDA-Public Use
  Company Number: CA-ALLERGAN-1951509US

PATIENT
  Sex: Female
  Weight: 73.9 kg

DRUGS (7)
  1. ASENAPINE MALEATE - BP [Suspect]
     Active Substance: ASENAPINE MALEATE
     Indication: BIPOLAR DISORDER
     Dosage: 5 MG, BID
     Route: 060
     Dates: start: 20181204
  2. ZOPICLONE [Suspect]
     Active Substance: ZOPICLONE
     Indication: SLEEP DISORDER
     Dosage: 7.5 MG
     Route: 048
     Dates: start: 20190812
  3. VENTOLIN [Concomitant]
     Active Substance: ALBUTEROL SULFATE
  4. FLOVENT [Concomitant]
     Active Substance: FLUTICASONE PROPIONATE
  5. VENLAFAXINE HYDROCHLORIDE. [Concomitant]
     Active Substance: VENLAFAXINE HYDROCHLORIDE
     Dosage: UNK
     Dates: start: 20190321
  6. CYANOCOBALAMIN. [Concomitant]
     Active Substance: CYANOCOBALAMIN
     Dosage: UNK
     Dates: start: 2014
  7. CLONAZEPAM. [Concomitant]
     Active Substance: CLONAZEPAM
     Dosage: UNK
     Dates: start: 20180323

REACTIONS (11)
  - Tooth discolouration [Not Recovered/Not Resolved]
  - Dysgeusia [Unknown]
  - Decreased appetite [Unknown]
  - Hyperhidrosis [Unknown]
  - Feeling hot [Unknown]
  - Abdominal distension [Unknown]
  - Constipation [Unknown]
  - Gingivitis [Unknown]
  - Lymphadenopathy [Unknown]
  - Oral pain [Unknown]
  - Dry mouth [Not Recovered/Not Resolved]
